FAERS Safety Report 10017752 (Version 2)
Quarter: 2014Q1

REPORT INFORMATION
  Report Type: Spontaneous
  Country: US (occurrence: US)
  Receive Date: 20140318
  Receipt Date: 20140318
  Transmission Date: 20141002
  Serious: Yes (Other)
  Sender: FDA-Public Use
  Company Number: US-BRISTOL-MYERS SQUIBB COMPANY-18783928

PATIENT
  Age: 70 Year
  Sex: Female

DRUGS (10)
  1. ERBITUX SOLN FOR INF [Suspect]
     Indication: COLORECTAL CANCER
     Dosage: 30 TO 55CC^S
     Route: 042
     Dates: start: 20130410, end: 20130410
  2. BENADRYL [Concomitant]
  3. DECADRON [Concomitant]
  4. ASPIRIN [Concomitant]
  5. ATENOLOL [Concomitant]
  6. LASIX [Concomitant]
  7. GLIMEPIRIDE [Concomitant]
  8. HYDRALAZINE [Concomitant]
  9. LISINOPRIL [Concomitant]
  10. ZEMPLAR [Concomitant]

REACTIONS (4)
  - Chest discomfort [Recovered/Resolved]
  - Throat tightness [Recovered/Resolved]
  - Hypotension [Recovered/Resolved]
  - Cough [Recovered/Resolved]
